FAERS Safety Report 10619026 (Version 1)
Quarter: 2014Q4

REPORT INFORMATION
  Report Type: Spontaneous
  Country: US (occurrence: None)
  Receive Date: 20141126
  Receipt Date: 20141126
  Transmission Date: 20150529
  Serious: Yes (Hospitalization, Other)
  Sender: FDA-Public Use
  Company Number: 2014US009983

PATIENT
  Age: 63 Year
  Sex: Male

DRUGS (2)
  1. ELIGARD [Suspect]
     Active Substance: LEUPROLIDE ACETATE
     Indication: PROSTATE CANCER
     Dosage: 45MG, ONEC IN 6 MONTHS, SUBCUTANEOUS
     Route: 058
     Dates: start: 201405
  2. LISINOPRIL. [Concomitant]
     Active Substance: LISINOPRIL

REACTIONS (2)
  - Drug dose omission [None]
  - Cerebrovascular accident [None]

NARRATIVE: CASE EVENT DATE: 20141111
